FAERS Safety Report 5877389-X (Version None)
Quarter: 2008Q3

REPORT INFORMATION
  Report Type: 
  Country: None (occurrence: None)
  Receive Date: 20080908
  Receipt Date: 20080822
  Transmission Date: 20090109
  Serious: Yes (Death, Other)
  Sender: FDA-Public Use
  Company Number: WAES 0808GBR00095

PATIENT
  Age: 64 Year
  Sex: Male

DRUGS (9)
  1. JANUVIA [Suspect]
     Indication: TYPE 2 DIABETES MELLITUS
     Dosage: 100 MG/DAILY
     Route: 048
  2. ALBUTEROL SULFATE [Concomitant]
  3. ALBUTEROL SULFATE [Concomitant]
  4. ASPIRIN [Concomitant]
  5. FLUTICASONE PROPIONATE (+) SALMETEROL XI [Concomitant]
  6. IPRATROPIUM BROMIDE [Concomitant]
  7. METFORMIN HCL [Concomitant]
  8. PRAVASTATIN SODIUM [Concomitant]
  9. TELMISARTAN [Concomitant]

REACTIONS (1)
  - CARDIAC ARREST [None]
